FAERS Safety Report 5802747-9 (Version None)
Quarter: 2008Q3

REPORT INFORMATION
  Report Type: 
  Country: None (occurrence: None)
  Receive Date: 20080708
  Receipt Date: 20080626
  Transmission Date: 20090109
  Serious: Yes (Death)
  Sender: FDA-Public Use
  Company Number: JP-NOVOPROD-276519

PATIENT
  Age: 47 Year
  Sex: Male
  Weight: 89 kg

DRUGS (6)
  1. LEVEMIR [Suspect]
     Indication: TYPE 1 DIABETES MELLITUS
     Dosage: 32 IU, QD
     Route: 058
     Dates: start: 20080430, end: 20080521
  2. HUMACART R [Concomitant]
     Dosage: 76 IU, UNK
     Route: 058
     Dates: end: 20080521
  3. VOGLIBOSE [Concomitant]
     Indication: TYPE 1 DIABETES MELLITUS
     Route: 048
     Dates: end: 20080521
  4. LIPITOR [Concomitant]
     Indication: HYPERLIPIDAEMIA
     Route: 048
     Dates: end: 20080521
  5. ACECOL [Concomitant]
     Indication: HYPERTENSION
     Route: 048
     Dates: end: 20080521
  6. HUMACART N [Concomitant]
     Indication: TYPE 1 DIABETES MELLITUS

REACTIONS (3)
  - CARDIOVASCULAR DISORDER [None]
  - CEREBROVASCULAR DISORDER [None]
  - HYPOGLYCAEMIA [None]
